FAERS Safety Report 9187191 (Version 2)
Quarter: 2013Q2

REPORT INFORMATION
  Report Type: Spontaneous
  Country: DE (occurrence: DE)
  Receive Date: 20130325
  Receipt Date: 20130529
  Transmission Date: 20140414
  Serious: Yes (Other)
  Sender: FDA-Public Use
  Company Number: PHHY2013DE027164

PATIENT
  Age: 51 Year
  Sex: Female
  Weight: 70 kg

DRUGS (1)
  1. MERIMONO [Suspect]
     Indication: MENOPAUSAL SYMPTOMS
     Dosage: 2 MG
     Route: 048
     Dates: start: 2011, end: 20130310

REACTIONS (1)
  - Hypertension [Recovered/Resolved]
